FAERS Safety Report 10971497 (Version 1)
Quarter: 2015Q1

REPORT INFORMATION
  Report Type: Spontaneous
  Country: US (occurrence: None)
  Receive Date: 20150330
  Receipt Date: 20150330
  Transmission Date: 20150721
  Serious: Yes (Hospitalization, Disabling, Congenital Anomaly)
  Sender: FDA-Public Use
  Company Number: None

PATIENT
  Age: 35 Year
  Sex: Female
  Weight: 54.43 kg

DRUGS (5)
  1. VALIUM TAPER [Concomitant]
  2. MULTIVITAMIN [Concomitant]
     Active Substance: VITAMINS
  3. MAGNESIUM [Concomitant]
     Active Substance: MAGNESIUM
  4. TART CHERRY JUICE [Concomitant]
  5. ATIVAN [Suspect]
     Active Substance: LORAZEPAM
     Indication: INSOMNIA
     Dosage: 1 PILL EACH NIGHT
     Route: 048

REACTIONS (18)
  - Blood pressure abnormal [None]
  - Derealisation [None]
  - Heart rate irregular [None]
  - Depersonalisation [None]
  - Muscle twitching [None]
  - Pregnancy [None]
  - Alopecia [None]
  - Furuncle [None]
  - Cyst [None]
  - Weight decreased [None]
  - Insomnia [None]
  - Depression [None]
  - Amnesia [None]
  - Pain [None]
  - Maternal exposure during pregnancy [None]
  - Abortion spontaneous [None]
  - Nausea [None]
  - Anxiety [None]

NARRATIVE: CASE EVENT DATE: 20140309
